FAERS Safety Report 14008757 (Version 1)
Quarter: 2017Q3

REPORT INFORMATION
  Report Type: Spontaneous
  Country: JP (occurrence: JP)
  Receive Date: 20170925
  Receipt Date: 20170925
  Transmission Date: 20171128
  Serious: Yes (Death, Other)
  Sender: FDA-Public Use
  Company Number: JP-PFIZER INC-2017409633

PATIENT
  Age: 64 Year
  Sex: Female

DRUGS (1)
  1. ALDACTONE A 25MG [Suspect]
     Active Substance: SPIRONOLACTONE
     Dosage: UNK
     Route: 048
     Dates: start: 201608, end: 201608

REACTIONS (2)
  - Agranulocytosis [Fatal]
  - Sepsis [Fatal]
